FAERS Safety Report 21602396 (Version 1)
Quarter: 2022Q4

REPORT INFORMATION
  Report Type: Spontaneous
  Country: US (occurrence: None)
  Receive Date: 20221115
  Receipt Date: 20221115
  Transmission Date: 20230113
  Serious: No
  Sender: FDA-Public Use
  Company Number: None

PATIENT
  Age: 31 Year
  Sex: Female

DRUGS (1)
  1. BUPRENORPHINE\NALOXONE [Suspect]
     Active Substance: BUPRENORPHINE\NALOXONE
     Dosage: FREQUENCY : DAILY;?
     Route: 060

REACTIONS (4)
  - Oral pain [None]
  - Product solubility abnormal [None]
  - Stomatitis [None]
  - Dysphonia [None]
